FAERS Safety Report 14928509 (Version 1)
Quarter: 2018Q2

REPORT INFORMATION
  Report Type: Spontaneous
  Country: US (occurrence: US)
  Receive Date: 20180523
  Receipt Date: 20180523
  Transmission Date: 20180711
  Serious: No
  Sender: FDA-Public Use
  Company Number: US-DRREDDYS-USA/USA/17/0090779

PATIENT
  Age: 21 Year
  Sex: Male
  Weight: 87.54 kg

DRUGS (1)
  1. ZENATANE [Suspect]
     Active Substance: ISOTRETINOIN
     Indication: ACNE
     Route: 048
     Dates: start: 201612, end: 20170323

REACTIONS (1)
  - Blood triglycerides increased [Recovered/Resolved]
